FAERS Safety Report 5196759-9 (Version None)
Quarter: 2006Q4

REPORT INFORMATION
  Report Type: 
  Country: None (occurrence: None)
  Receive Date: 20061229
  Receipt Date: 20061229
  Transmission Date: 20070319
  Serious: No
  Sender: FDA-Public Use
  Company Number: None

PATIENT
  Age: 71 Year
  Sex: Male
  Weight: 111.1313 kg

DRUGS (2)
  1. AVELOX [Suspect]
     Indication: INFECTION
     Dosage: ONE PER DAY FOR 10 DAYS
     Dates: start: 20061024, end: 20061103
  2. AVELOX [Suspect]
     Indication: RESPIRATION ABNORMAL
     Dosage: ONE PER DAY FOR 10 DAYS
     Dates: start: 20061024, end: 20061103

REACTIONS (6)
  - JOINT CONTRACTURE [None]
  - MASS [None]
  - MOVEMENT DISORDER [None]
  - MUSCLE SPASMS [None]
  - PAIN IN EXTREMITY [None]
  - TENDON PAIN [None]
